FAERS Safety Report 13699028 (Version 1)
Quarter: 2017Q2

REPORT INFORMATION
  Report Type: Spontaneous
  Country: US (occurrence: US)
  Receive Date: 20170628
  Receipt Date: 20170628
  Transmission Date: 20170830
  Serious: Yes (Other)
  Sender: FDA-Public Use
  Company Number: US-TEVA-782221USA

PATIENT
  Sex: Female

DRUGS (1)
  1. CINQAIR [Suspect]
     Active Substance: RESLIZUMAB
     Route: 065

REACTIONS (1)
  - Deep vein thrombosis [Unknown]
